FAERS Safety Report 26013357 (Version 1)
Quarter: 2025Q4

REPORT INFORMATION
  Report Type: Spontaneous
  Country: US (occurrence: None)
  Receive Date: 20251107
  Receipt Date: 20251107
  Transmission Date: 20260118
  Serious: Yes (Disabling)
  Sender: FDA-CTU
  Company Number: None

PATIENT
  Age: 64 Year
  Sex: Male
  Weight: 92.25 kg

DRUGS (2)
  1. PAXIL [Suspect]
     Active Substance: PAROXETINE HYDROCHLORIDE
     Indication: Major depression
     Dosage: OTHER STRENGTH : 20 MG ? 10 MG ? ;?FREQUENCY : DAILY;?
     Route: 048
     Dates: start: 20160601, end: 20200212
  2. ZOLOFT [Suspect]
     Active Substance: SERTRALINE HYDROCHLORIDE

REACTIONS (4)
  - Product use complaint [None]
  - Palpitations [None]
  - Serotonin syndrome [None]
  - Night blindness [None]

NARRATIVE: CASE EVENT DATE: 20200909
